FAERS Safety Report 6566573-8 (Version None)
Quarter: 2010Q1

REPORT INFORMATION
  Report Type: 
  Country: None (occurrence: None)
  Receive Date: 20100202
  Receipt Date: 20100123
  Transmission Date: 20100710
  Serious: Yes (Hospitalization, Other)
  Sender: FDA-Public Use
  Company Number: MX-PFIZER INC-2008065411

PATIENT
  Age: 76 Year
  Sex: Female
  Weight: 58 kg

DRUGS (15)
  1. FLUOROURACIL [Suspect]
     Indication: COLORECTAL CANCER METASTATIC
     Dosage: 500 MG, EVERY 2 WEEKS
     Route: 040
     Dates: start: 20080524, end: 20080626
  2. FLUOROURACIL [Suspect]
     Dosage: 2900 MG, EVERY 2 WEEKS
     Route: 041
     Dates: start: 20080524, end: 20080626
  3. FLUOROURACIL [Suspect]
     Dosage: 400 MG, EVERY 2 WEEKS
     Route: 040
     Dates: start: 20080712, end: 20080712
  4. FLUOROURACIL [Suspect]
     Dosage: 1150 MG, EVERY 2 WEEKS
     Route: 041
     Dates: start: 20080712, end: 20080714
  5. CALCIUM FOLINATE [Suspect]
     Indication: COLORECTAL CANCER METASTATIC
     Dosage: 250 MG, EVERY 2 WEEKS
     Route: 042
     Dates: start: 20080524, end: 20080624
  6. CALCIUM FOLINATE [Suspect]
     Dosage: 200 MG, EVERY 2 WEEKS
     Dates: start: 20080712, end: 20080712
  7. BLINDED *NO SUBJECT DRUG [Suspect]
     Indication: COLORECTAL CANCER METASTATIC
     Dosage: 37.5 MG, 1X/DAY
     Route: 048
     Dates: start: 20080524, end: 20080725
  8. BLINDED *PLACEBO [Suspect]
     Indication: COLORECTAL CANCER METASTATIC
     Dosage: 37.5 MG, 1X/DAY
     Route: 048
     Dates: start: 20080524, end: 20080725
  9. BLINDED SUNITINIB MALATE [Suspect]
     Indication: COLORECTAL CANCER METASTATIC
     Dosage: 37.5 MG, 1X/DAY
     Route: 048
     Dates: start: 20080524, end: 20080725
  10. IRINOTECAN HYDROCHLORIDE [Suspect]
     Indication: COLORECTAL CANCER METASTATIC
     Dosage: 220 MG, EVERY 2 WEEKS
     Route: 042
     Dates: start: 20080524, end: 20080624
  11. IRINOTECAN HYDROCHLORIDE [Suspect]
     Dosage: 175 MG, EVERY 2 WEEKS
     Route: 042
     Dates: start: 20080712, end: 20080712
  12. CAPTOPRIL [Concomitant]
     Route: 048
     Dates: start: 20060801, end: 20080714
  13. ALLOPURINOL [Concomitant]
     Route: 048
     Dates: start: 20080524
  14. OMEPRAZOL [Concomitant]
     Route: 048
     Dates: start: 20080624
  15. METOCLOPRAMIDE [Concomitant]
     Dosage: UNK
     Route: 048
     Dates: start: 20080624, end: 20080726

REACTIONS (2)
  - ABDOMINAL ABSCESS [None]
  - RENAL IMPAIRMENT [None]
